FAERS Safety Report 25142899 (Version 2)
Quarter: 2025Q2

REPORT INFORMATION
  Report Type: Spontaneous
  Country: JP (occurrence: JP)
  Receive Date: 20250401
  Receipt Date: 20250626
  Transmission Date: 20250716
  Serious: Yes (Life-Threatening, Hospitalization, Other)
  Sender: TAKEDA
  Company Number: JP-TAKEDA-2025TJP003254

PATIENT
  Age: 60 Year
  Sex: Male
  Weight: 68.5 kg

DRUGS (44)
  1. LEUPROLIDE ACETATE [Suspect]
     Active Substance: LEUPROLIDE ACETATE
     Indication: Bulbospinal muscular atrophy congenital
     Dosage: 11.25 MILLIGRAM, Q3MONTHS
     Dates: start: 20200718, end: 20231122
  2. ROZEREM [Suspect]
     Active Substance: RAMELTEON
     Indication: Product used for unknown indication
  3. NEXIUM [Suspect]
     Active Substance: ESOMEPRAZOLE MAGNESIUM
     Indication: Product used for unknown indication
  4. ZOSYN [Suspect]
     Active Substance: PIPERACILLIN SODIUM\TAZOBACTAM SODIUM
     Indication: Pneumonia
     Dosage: 4.5 GRAM, TID
     Dates: start: 20220413
  5. VANCOMYCIN [Suspect]
     Active Substance: VANCOMYCIN
     Indication: Pneumonia
     Dosage: 1 GRAM, BID
     Dates: start: 20220415, end: 20220418
  6. OLMESARTAN [Concomitant]
     Active Substance: OLMESARTAN
  7. Canalia [Concomitant]
  8. ZETIA [Concomitant]
     Active Substance: EZETIMIBE
  9. METGLUCO [Concomitant]
     Active Substance: METFORMIN HYDROCHLORIDE
  10. KETOPROFEN [Concomitant]
     Active Substance: KETOPROFEN
     Indication: Back pain
  11. ZOMETA [Concomitant]
     Active Substance: ZOLEDRONIC ACID
     Indication: Hypercalcaemia
     Dosage: 4 MILLIGRAM, QD
     Dates: start: 20230728, end: 20230728
  12. ZOMETA [Concomitant]
     Active Substance: ZOLEDRONIC ACID
     Dosage: 3.28 MILLIGRAM, QD
     Dates: start: 20231024, end: 20231024
  13. ZOMETA [Concomitant]
     Active Substance: ZOLEDRONIC ACID
     Dosage: 3.28 MILLIGRAM, QD
     Dates: start: 20231121, end: 20231121
  14. ZOMETA [Concomitant]
     Active Substance: ZOLEDRONIC ACID
     Dosage: 3.28 MILLIGRAM, QD
     Dates: start: 20240116, end: 20240116
  15. LASIX [Concomitant]
     Active Substance: FUROSEMIDE
     Indication: Hypercalcaemia
     Dosage: 20 MILLIGRAM, QD
     Dates: start: 20230730, end: 20230730
  16. LASIX [Concomitant]
     Active Substance: FUROSEMIDE
     Indication: Oliguria
     Dosage: 40 MILLIGRAM, QD
     Dates: start: 20240122, end: 20240122
  17. LASIX [Concomitant]
     Active Substance: FUROSEMIDE
     Indication: Anuria
     Dosage: 60 MILLIGRAM, QD
     Dates: start: 20240123, end: 20240123
  18. LASIX [Concomitant]
     Active Substance: FUROSEMIDE
     Dosage: 100 MILLIGRAM, QD
     Dates: start: 20240124, end: 20240124
  19. CEFEPIME HYDROCHLORIDE [Concomitant]
     Active Substance: CEFEPIME HYDROCHLORIDE
     Indication: Pneumonia
     Dosage: 1 GRAM, BID
     Dates: start: 20220601, end: 20220606
  20. CEFEPIME HYDROCHLORIDE [Concomitant]
     Active Substance: CEFEPIME HYDROCHLORIDE
     Indication: Urinary tract infection
     Dosage: 1 GRAM, BID
     Dates: start: 20230729, end: 20230804
  21. CEFEPIME HYDROCHLORIDE [Concomitant]
     Active Substance: CEFEPIME HYDROCHLORIDE
     Dosage: 1 GRAM, BID
     Dates: start: 20230807, end: 20230816
  22. CEFEPIME HYDROCHLORIDE [Concomitant]
     Active Substance: CEFEPIME HYDROCHLORIDE
     Dosage: 1 GRAM, BID
     Dates: start: 20230828, end: 20230901
  23. CEFEPIME HYDROCHLORIDE [Concomitant]
     Active Substance: CEFEPIME HYDROCHLORIDE
     Dosage: 1 GRAM, BID
     Dates: start: 20230922, end: 20230925
  24. CEFEPIME HYDROCHLORIDE [Concomitant]
     Active Substance: CEFEPIME HYDROCHLORIDE
     Dosage: 1 GRAM, BID
     Dates: start: 20231004, end: 20231010
  25. CEFEPIME HYDROCHLORIDE [Concomitant]
     Active Substance: CEFEPIME HYDROCHLORIDE
     Dosage: 1 GRAM, BID
     Dates: start: 20231115, end: 20231120
  26. CEFEPIME HYDROCHLORIDE [Concomitant]
     Active Substance: CEFEPIME HYDROCHLORIDE
     Dosage: 1 GRAM, BID
     Dates: start: 20231205, end: 20231213
  27. CEFEPIME HYDROCHLORIDE [Concomitant]
     Active Substance: CEFEPIME HYDROCHLORIDE
     Dosage: 1 GRAM, BID
     Dates: start: 20240106, end: 20240115
  28. CARBAZOCHROME SODIUM SULFONATE [Concomitant]
     Active Substance: CARBAZOCHROME SODIUM SULFONATE
     Indication: Haemothorax
     Dosage: 50 MILLIGRAM, QD
     Dates: start: 20230729, end: 20230807
  29. CARBAZOCHROME SODIUM SULFONATE [Concomitant]
     Active Substance: CARBAZOCHROME SODIUM SULFONATE
     Dosage: 30 MILLIGRAM, TID
     Dates: start: 20230808, end: 20230821
  30. TRANSAMIN [Concomitant]
     Active Substance: TRANEXAMIC ACID
     Indication: Haemothorax
     Dosage: 5 MILLILITER, QD
     Dates: start: 20230729, end: 20230807
  31. METOCLOPRAMIDE HYDROCHLORIDE [Concomitant]
     Active Substance: METOCLOPRAMIDE HYDROCHLORIDE
     Indication: Nausea
     Dosage: 10 MILLIGRAM, QD
     Dates: start: 20230729, end: 20230807
  32. DOPAMINE HYDROCHLORIDE [Concomitant]
     Active Substance: DOPAMINE HYDROCHLORIDE
     Indication: Blood pressure decreased
     Dates: start: 20230730, end: 20230731
  33. TRANEXAMIC ACID [Concomitant]
     Active Substance: TRANEXAMIC ACID
     Indication: Haemothorax
     Dosage: 500 MILLIGRAM, TID
     Dates: start: 20230808, end: 20230821
  34. INDERAL [Concomitant]
     Active Substance: PROPRANOLOL HYDROCHLORIDE
     Indication: Tremor
     Dosage: 10 MILLIGRAM, TID
     Dates: start: 20230807, end: 20230808
  35. SITAGLIPTIN [Concomitant]
     Active Substance: SITAGLIPTIN
     Indication: Diabetes mellitus
     Dosage: 50 MILLIGRAM, QD
     Dates: start: 20230926, end: 20231204
  36. ELCATONIN [Concomitant]
     Active Substance: ELCATONIN
     Indication: Hypercalcaemia
     Dosage: 40 INTERNATIONAL UNIT, BID
     Dates: start: 20231006, end: 20231023
  37. FEBUXOSTAT [Concomitant]
     Active Substance: FEBUXOSTAT
     Indication: Hyperuricaemia
     Dosage: 10 MILLIGRAM, QD
     Dates: start: 20231010, end: 20240124
  38. BANAN [Concomitant]
     Active Substance: CEFPODOXIME PROXETIL
     Indication: Bronchitis
     Dosage: 100 MILLIGRAM, BID
     Dates: start: 20210618, end: 20210622
  39. AMBROXOL HYDROCHLORIDE [Concomitant]
     Active Substance: AMBROXOL HYDROCHLORIDE
     Indication: Bronchitis
     Dosage: 15 MILLIGRAM, TID
     Dates: start: 20210618, end: 20210622
  40. SOLU-MEDROL [Concomitant]
     Active Substance: METHYLPREDNISOLONE SODIUM SUCCINATE
     Indication: Pneumonia
     Dosage: 80 MILLIGRAM, QD
     Dates: start: 20220414
  41. FUROSEMIDE [Concomitant]
     Active Substance: FUROSEMIDE
     Indication: Renal failure
     Dosage: 60 MILLIGRAM, QD
     Dates: start: 20220419
  42. FUROSEMIDE [Concomitant]
     Active Substance: FUROSEMIDE
     Indication: Polyuria
  43. VEKLURY [Concomitant]
     Active Substance: REMDESIVIR
     Indication: COVID-19
     Dosage: 200 MILLIGRAM, QD
     Dates: start: 20230124, end: 20230124
  44. VEKLURY [Concomitant]
     Active Substance: REMDESIVIR
     Dosage: 100 MILLIGRAM, QD
     Dates: start: 20230125, end: 20230126

REACTIONS (9)
  - Haemothorax [Unknown]
  - Hypercapnia [Recovering/Resolving]
  - Staphylococcal sepsis [Recovered/Resolved]
  - Acute kidney injury [Recovering/Resolving]
  - Urinary tract infection [Recovered/Resolved]
  - Hyperuricaemia [Unknown]
  - COVID-19 [Recovered/Resolved]
  - Drug eruption [Unknown]
  - Inappropriate schedule of product administration [Unknown]

NARRATIVE: CASE EVENT DATE: 20201009
